FAERS Safety Report 9217977 (Version 3)
Quarter: 2013Q2

REPORT INFORMATION
  Report Type: Spontaneous
  Country: CH (occurrence: CH)
  Receive Date: 20130408
  Receipt Date: 20130524
  Transmission Date: 20140414
  Serious: Yes (Other)
  Sender: FDA-Public Use
  Company Number: CH-AMGEN-CHESP2013023586

PATIENT
  Age: 79 Year
  Sex: Male
  Weight: 75 kg

DRUGS (3)
  1. XGEVA [Suspect]
     Indication: PROSTATE CANCER
     Dosage: 120 MG, UNK
     Route: 058
     Dates: start: 20130109
  2. XGEVA [Suspect]
     Indication: METASTASES TO BONE
  3. ZOLADEX                            /00732101/ [Concomitant]
     Dosage: 10.8 UNK, UNK
     Route: 058
     Dates: start: 20130109

REACTIONS (2)
  - Cardiac failure [Unknown]
  - Aortic valve incompetence [Unknown]
